FAERS Safety Report 4486831-0 (Version None)
Quarter: 2004Q4

REPORT INFORMATION
  Report Type: 
  Country: None (occurrence: None)
  Receive Date: 20041022
  Receipt Date: 20041011
  Transmission Date: 20050328
  Serious: Yes (Other)
  Sender: FDA-Public Use
  Company Number: US-SHR-04-024829

PATIENT
  Age: 18 Year
  Sex: Female
  Weight: 45.8 kg

DRUGS (2)
  1. YASMIN [Suspect]
     Indication: OVARIAN CYST
     Dosage: 1 TAB(S), 1X/DAY, ORAL
     Route: 048
     Dates: start: 20040101, end: 20040218
  2. RIBOFLAVIN TAB [Concomitant]

REACTIONS (10)
  - ACTIVATED PARTIAL THROMBOPLASTIN TIME PROLONGED [None]
  - ANTIPHOSPHOLIPID SYNDROME [None]
  - DEEP VEIN THROMBOSIS [None]
  - FACTOR V LEIDEN MUTATION [None]
  - HAEMOGLOBIN DECREASED [None]
  - PROTEIN S DECREASED [None]
  - PROTEIN TOTAL INCREASED [None]
  - SYSTEMIC LUPUS ERYTHEMATOSUS [None]
  - THROMBOCYTOPENIA [None]
  - TONGUE ULCERATION [None]
